FAERS Safety Report 7902909-0 (Version None)
Quarter: 2011Q4

REPORT INFORMATION
  Report Type: 
  Country: None (occurrence: None)
  Receive Date: 20111109
  Receipt Date: 20111017
  Transmission Date: 20120403
  Serious: Yes (Other)
  Sender: FDA-Public Use
  Company Number: CA-JNJFOC-20111009852

PATIENT
  Sex: Female
  Weight: 66 kg

DRUGS (4)
  1. PLAQUENIL [Concomitant]
     Dosage: DOSE BID
     Route: 065
  2. INFLIXIMAB, RECOMBINANT [Suspect]
     Indication: RHEUMATOID ARTHRITIS
     Route: 042
     Dates: start: 20081104
  3. SYNTHROID [Concomitant]
     Route: 065
  4. METHOTREXATE [Concomitant]
     Route: 030

REACTIONS (1)
  - TOOTH EXTRACTION [None]
